FAERS Safety Report 18580365 (Version 3)
Quarter: 2021Q4

REPORT INFORMATION
  Report Type: Spontaneous
  Country: GB (occurrence: GB)
  Receive Date: 20201204
  Receipt Date: 20211207
  Transmission Date: 20220303
  Serious: Yes (Life-Threatening, Hospitalization, Disabling, Other)
  Sender: FDA-Public Use
  Company Number: None

PATIENT
  Age: 56 Year
  Sex: Male
  Weight: 76.2 kg

DRUGS (1)
  1. CIPROFLOXACIN [Suspect]
     Active Substance: CIPROFLOXACIN
     Indication: Epididymitis
     Dosage: 1 G
     Route: 048
     Dates: start: 20200925, end: 20200926

REACTIONS (35)
  - Tendonitis [Not Recovered/Not Resolved]
  - Tinnitus [Recovered/Resolved]
  - Burning sensation [Unknown]
  - Confusional state [Recovering/Resolving]
  - Neuropathy peripheral [Recovering/Resolving]
  - Vision blurred [Unknown]
  - Gastric disorder [Recovered/Resolved]
  - Tendon pain [Not Recovered/Not Resolved]
  - Anxiety [Recovering/Resolving]
  - Haemophilia [Not Recovered/Not Resolved]
  - Pain [Recovering/Resolving]
  - Dysuria [Unknown]
  - Pharyngeal swelling [Recovered/Resolved]
  - Sudden hearing loss [Unknown]
  - Ligament injury [Unknown]
  - Gastrointestinal pain [Recovering/Resolving]
  - Dysphagia [Recovered/Resolved]
  - Abdominal pain upper [Recovering/Resolving]
  - Feeding disorder [Unknown]
  - Vision blurred [Unknown]
  - Nerve injury [Unknown]
  - Paraesthesia [Unknown]
  - Tendon injury [Unknown]
  - Joint injury [Unknown]
  - Cyanosis [Recovered/Resolved]
  - Arthralgia [Unknown]
  - Neuropathy peripheral [Recovering/Resolving]
  - Areflexia [Unknown]
  - Spinal pain [Unknown]
  - Dysphonia [Unknown]
  - Confusional state [None]
  - Suicidal ideation [Unknown]
  - Groin pain [Unknown]
  - Swelling [Unknown]
  - Abnormal loss of weight [Unknown]

NARRATIVE: CASE EVENT DATE: 20200926
